FAERS Safety Report 7021321-2 (Version None)
Quarter: 2010Q3

REPORT INFORMATION
  Report Type: 
  Country: None (occurrence: None)
  Receive Date: 20100929
  Receipt Date: 20100920
  Transmission Date: 20110219
  Serious: Yes (Hospitalization, Other)
  Sender: FDA-Public Use
  Company Number: US-PFIZER INC-2010097987

PATIENT
  Age: 59 Year
  Sex: Male
  Weight: 54 kg

DRUGS (8)
  1. CHANTIX [Suspect]
     Indication: SMOKING CESSATION THERAPY
     Dosage: 1 MG, 2X/DAY
     Route: 048
     Dates: start: 20090819
  2. CHANTIX [Suspect]
     Dosage: 0.5 MG, 2X/DAY
     Route: 048
     Dates: end: 20100915
  3. SALBUTAMOL W/IPRATROPIUM [Concomitant]
     Dosage: ALBUTEROL 90/IPRATROPIUM 18MCG
  4. CLONAZEPAM [Concomitant]
     Dosage: UNK
  5. FLUNISOLIDE [Concomitant]
     Dosage: UNK
  6. FORMOTEROL [Concomitant]
     Dosage: UNK
  7. LITHIUM [Concomitant]
     Dosage: UNK
  8. SIMVASTATIN [Concomitant]
     Dosage: UNK

REACTIONS (7)
  - ABDOMINAL DISCOMFORT [None]
  - AGGRESSION [None]
  - AGITATION [None]
  - ANGER [None]
  - ANXIETY [None]
  - HOMICIDAL IDEATION [None]
  - IRRITABILITY [None]
